FAERS Safety Report 4380202-3 (Version None)
Quarter: 2004Q2

REPORT INFORMATION
  Report Type: 
  Country: None (occurrence: None)
  Receive Date: 20040601
  Receipt Date: 20040322
  Transmission Date: 20050107
  Serious: No
  Sender: FDA-Public Use
  Company Number: WAES0312USA02115

PATIENT
  Sex: Female

DRUGS (2)
  1. ZETIA [Suspect]
     Dosage: 10 MG/DAILY/PO
     Route: 048
  2. LESCOL [Concomitant]

REACTIONS (3)
  - ALANINE AMINOTRANSFERASE INCREASED [None]
  - ASPARTATE AMINOTRANSFERASE INCREASED [None]
  - BLOOD ALKALINE PHOSPHATASE INCREASED [None]
